FAERS Safety Report 21335873 (Version 2)
Quarter: 2022Q3

REPORT INFORMATION
  Report Type: Spontaneous
  Country: JP (occurrence: JP)
  Receive Date: 20220915
  Receipt Date: 20220919
  Transmission Date: 20221027
  Serious: Yes (Other)
  Sender: FDA-Public Use
  Company Number: JP-002147023-NVSJ2022JP096910

PATIENT
  Age: 66 Year
  Sex: Female

DRUGS (1)
  1. LUCENTIS [Suspect]
     Active Substance: RANIBIZUMAB
     Indication: Retinal aneurysm
     Dosage: UNK
     Route: 050
     Dates: start: 2020

REACTIONS (6)
  - Endophthalmitis [Recovering/Resolving]
  - Hyphaema [Unknown]
  - Anterior chamber cell [Unknown]
  - Visual acuity reduced [Recovering/Resolving]
  - Visual impairment [Unknown]
  - Product use in unapproved indication [Unknown]

NARRATIVE: CASE EVENT DATE: 20200101
